FAERS Safety Report 19369534 (Version 3)
Quarter: 2021Q4

REPORT INFORMATION
  Report Type: Spontaneous
  Country: DE (occurrence: DE)
  Receive Date: 20210603
  Receipt Date: 20211005
  Transmission Date: 20220303
  Serious: Yes (Other)
  Sender: FDA-Public Use
  Company Number: DE-BRISTOL-MYERS SQUIBB COMPANY-BMS-2021-033516

PATIENT
  Age: 84 Year
  Sex: Male
  Weight: 93 kg

DRUGS (7)
  1. ELIQUIS [Suspect]
     Active Substance: APIXABAN
     Indication: Cerebrovascular accident prophylaxis
     Dosage: 5 MILLIGRAM, BID
     Route: 065
     Dates: start: 2010
  2. ELIQUIS [Suspect]
     Active Substance: APIXABAN
     Dosage: 2.5 MG BID-AS PATIENT SPLITS 5 MG
     Route: 065
     Dates: start: 2021
  3. ELIQUIS [Suspect]
     Active Substance: APIXABAN
     Dosage: 2.5 MILLIGRAM, BID
     Route: 065
     Dates: start: 2021
  4. CANDESARTAN [Suspect]
     Active Substance: CANDESARTAN
     Indication: Hypertension
     Dosage: 2.5 MILLIGRAM, QD
     Route: 065
     Dates: end: 202104
  5. CANDESARTAN [Suspect]
     Active Substance: CANDESARTAN
     Dosage: 8 MILLIGRAM
     Route: 065
  6. BISOPROLOL FUMARATE [Suspect]
     Active Substance: BISOPROLOL FUMARATE
     Indication: Hypertension
     Dosage: 5 MILLIGRAM, QD
     Route: 065
  7. MAGNESIUM VERLA [MAGNESIUM HYDROGEN ASPARTATE] [Concomitant]
     Indication: Product used for unknown indication
     Dosage: UNK
     Route: 065

REACTIONS (18)
  - Bradycardia [Recovered/Resolved]
  - Epistaxis [Recovered/Resolved]
  - Entropion [Recovering/Resolving]
  - Fatigue [Not Recovered/Not Resolved]
  - Treatment noncompliance [Unknown]
  - Haematoma [Recovered/Resolved]
  - Pain in extremity [Unknown]
  - Vein disorder [Unknown]
  - Paraesthesia [Unknown]
  - Headache [Recovered/Resolved]
  - Contusion [Recovered/Resolved]
  - Depression [Recovering/Resolving]
  - Benign prostatic hyperplasia [Not Recovered/Not Resolved]
  - Blood pressure fluctuation [Not Recovered/Not Resolved]
  - Dizziness [Not Recovered/Not Resolved]
  - Feeling abnormal [Unknown]
  - Heart rate decreased [Unknown]
  - Intentional product use issue [Unknown]

NARRATIVE: CASE EVENT DATE: 20180101
